FAERS Safety Report 25400334 (Version 1)
Quarter: 2025Q2

REPORT INFORMATION
  Report Type: Spontaneous
  Country: US (occurrence: US)
  Receive Date: 20250605
  Receipt Date: 20250605
  Transmission Date: 20250717
  Serious: Yes (Other)
  Sender: ROCHE
  Company Number: US-ROCHE-10000299400

PATIENT

DRUGS (1)
  1. OCREVUS ZUNOVO [Suspect]
     Active Substance: HYALURONIDASE-OCSQ\OCRELIZUMAB
     Indication: Product used for unknown indication
     Route: 042

REACTIONS (6)
  - Contusion [Unknown]
  - Abdominal distension [Unknown]
  - Urticaria [Unknown]
  - Pain [Unknown]
  - Blindness [Unknown]
  - Asthenia [Unknown]
